FAERS Safety Report 12278927 (Version 1)
Quarter: 2016Q2

REPORT INFORMATION
  Report Type: Report from Study
  Country: BR (occurrence: BR)
  Receive Date: 20160418
  Receipt Date: 20160418
  Transmission Date: 20160815
  Serious: Yes (Other)
  Sender: FDA-Public Use
  Company Number: PHHY2015BR136558

PATIENT
  Sex: Male
  Weight: 60 kg

DRUGS (2)
  1. EXELON [Suspect]
     Active Substance: RIVASTIGMINE TARTRATE
     Indication: PRODUCT USED FOR UNKNOWN INDICATION
     Dosage: UNK
     Route: 048
  2. EXELON PATCH [Suspect]
     Active Substance: RIVASTIGMINE
     Indication: SENILE DEMENTIA
     Dosage: 4.6 MG, PATCH (5 CM2), QD
     Route: 062
     Dates: start: 20150925

REACTIONS (8)
  - Drug hypersensitivity [Unknown]
  - Application site erythema [Recovering/Resolving]
  - Speech disorder [Unknown]
  - Application site pruritus [Recovering/Resolving]
  - Drug ineffective [Unknown]
  - Cerebral atrophy [Unknown]
  - Central nervous system lesion [Unknown]
  - Application site pain [Not Recovered/Not Resolved]
